FAERS Safety Report 18437298 (Version 1)
Quarter: 2020Q4

REPORT INFORMATION
  Report Type: Report from Study
  Country: JP (occurrence: JP)
  Receive Date: 20201028
  Receipt Date: 20201028
  Transmission Date: 20210114
  Serious: Yes (Other)
  Sender: FDA-Public Use
  Company Number: JP-JNJFOC-20201033642

PATIENT

DRUGS (5)
  1. DEXAMETHASONE. [Suspect]
     Active Substance: DEXAMETHASONE
     Indication: PLASMA CELL MYELOMA
     Dosage: DOSE UNKNOWN
     Route: 065
  2. DARZALEX [Suspect]
     Active Substance: DARATUMUMAB
     Indication: PLASMA CELL MYELOMA
     Route: 041
  3. VELCADE [Suspect]
     Active Substance: BORTEZOMIB
     Indication: PLASMA CELL MYELOMA
     Dosage: DOSE UNKNOWN
     Route: 065
  4. ACETAMINOPHEN. [Concomitant]
     Active Substance: ACETAMINOPHEN
     Indication: PRODUCT USED FOR UNKNOWN INDICATION
     Dosage: DOSE UNKNOWN
     Route: 065
  5. LENALIDOMIDE HYDRATE [Suspect]
     Active Substance: LENALIDOMIDE
     Indication: PLASMA CELL MYELOMA
     Dosage: DOSE UNKNOWN
     Route: 048

REACTIONS (16)
  - Thrombocytopenia [Unknown]
  - Anaemia [Unknown]
  - Transaminases increased [Unknown]
  - Fatigue [Unknown]
  - Febrile neutropenia [Unknown]
  - Lymphopenia [Unknown]
  - Blood creatinine increased [Unknown]
  - Tumour lysis syndrome [Unknown]
  - Insomnia [Unknown]
  - Depression [Unknown]
  - Cytomegalovirus test positive [Unknown]
  - Infusion related reaction [Unknown]
  - Escherichia sepsis [Recovered/Resolved]
  - Neutropenia [Unknown]
  - Nausea [Unknown]
  - Constipation [Unknown]
